FAERS Safety Report 10742366 (Version 1)
Quarter: 2015Q1

REPORT INFORMATION
  Report Type: Report from Study
  Country: AT (occurrence: AT)
  Receive Date: 20150127
  Receipt Date: 20150127
  Transmission Date: 20150721
  Serious: Yes (Hospitalization)
  Sender: FDA-Public Use
  Company Number: AT-BRISTOL-MYERS SQUIBB COMPANY-21253851

PATIENT
  Age: 74 Year
  Sex: Male
  Weight: 67.1 kg

DRUGS (25)
  1. ACICLOVIR [Concomitant]
     Active Substance: ACYCLOVIR
  2. ARANESP [Concomitant]
     Active Substance: DARBEPOETIN ALFA
     Dates: start: 20140828, end: 20140828
  3. DEXABENE [Concomitant]
     Dates: start: 20140915, end: 20140915
  4. CLAVAMOX                           /00756801/ [Concomitant]
     Dates: start: 20140920, end: 20140924
  5. DIPROGENTA [Concomitant]
     Active Substance: BETAMETHASONE DIPROPIONATE\GENTAMICIN SULFATE
     Dates: start: 20140729, end: 20140812
  6. EFFENTORA [Concomitant]
     Active Substance: FENTANYL CITRATE
     Dates: start: 20141014
  7. LASIX [Concomitant]
     Active Substance: FUROSEMIDE
     Dates: start: 20140930, end: 20141010
  8. MUCOBENE [Concomitant]
     Dates: start: 20140919, end: 20140922
  9. NEULASTA [Concomitant]
     Active Substance: PEGFILGRASTIM
     Dates: start: 20140904, end: 20140904
  10. DEXABENE [Concomitant]
     Dates: start: 20140916, end: 20140916
  11. MINOSTAD [Concomitant]
     Dates: start: 20140729, end: 20140811
  12. NEULASTA [Concomitant]
     Active Substance: PEGFILGRASTIM
     Dates: start: 20140925, end: 20140925
  13. TANNOSYNT [Concomitant]
     Dates: start: 20140723, end: 20140727
  14. DIPROGENTA [Concomitant]
     Active Substance: BETAMETHASONE DIPROPIONATE\GENTAMICIN SULFATE
     Dates: start: 20140729, end: 20140806
  15. REFOBACIN [Concomitant]
     Dates: start: 20140807, end: 20140812
  16. VALACICLOVIR [Concomitant]
     Active Substance: VALACYCLOVIR HYDROCHLORIDE
  17. TAZONAM [Concomitant]
     Active Substance: TAZOBACTAM
     Dates: start: 20140915, end: 20140919
  18. MINOCYCLINE [Concomitant]
     Active Substance: MINOCYCLINE\MINOCYCLINE HYDROCHLORIDE
  19. PREDNISOLONE. [Concomitant]
     Active Substance: PREDNISOLONE
  20. DEXABENE [Concomitant]
     Dates: start: 20140917, end: 20140919
  21. SPIROBENE [Concomitant]
     Dates: start: 20141015
  22. NIVOLUMAB [Suspect]
     Active Substance: NIVOLUMAB
     Indication: NON-SMALL CELL LUNG CANCER
     Dosage: 3MG/KG
     Route: 042
     Dates: start: 20140702, end: 20140731
  23. ARANESP [Concomitant]
     Active Substance: DARBEPOETIN ALFA
     Dates: start: 20140911, end: 20140911
  24. BANEOCIN                           /00037701/ [Concomitant]
     Dates: start: 20140813
  25. COMBIVENT [Concomitant]
     Active Substance: ALBUTEROL SULFATE\IPRATROPIUM BROMIDE
     Dates: start: 20140915, end: 20140921

REACTIONS (1)
  - Rash papular [Recovered/Resolved]

NARRATIVE: CASE EVENT DATE: 20140728
